FAERS Safety Report 5960402-9 (Version None)
Quarter: 2008Q4

REPORT INFORMATION
  Report Type: 
  Country: None (occurrence: None)
  Receive Date: 20081113
  Receipt Date: 20081031
  Transmission Date: 20090506
  Serious: Yes (Death)
  Sender: FDA-Public Use
  Company Number: AECAN200800168

PATIENT
  Age: 83 Year
  Sex: Male
  Weight: 59 kg

DRUGS (8)
  1. IMMUNE GLOBULIN INTRAVENOUS (HUMAN) [Suspect]
     Indication: THROMBOCYTOPENIA
     Dosage: 10 GM;QD;IV
     Route: 042
     Dates: start: 20080727, end: 20080729
  2. IMMUNE GLOBULIN INTRAVENOUS (HUMAN) [Suspect]
     Indication: THROMBOCYTOPENIA
     Dosage: 20 GM;QD;IV
     Route: 042
     Dates: start: 20080727, end: 20080729
  3. PLATELETS [Concomitant]
  4. BROMAZEPAM [Concomitant]
  5. XALATAN [Concomitant]
  6. BRIMONIDINE [Concomitant]
  7. FERROUS GLUCONATE [Concomitant]
  8. DOCUSATE [Concomitant]

REACTIONS (5)
  - ANAEMIA HAEMOLYTIC AUTOIMMUNE [None]
  - ASTHENIA [None]
  - EPISTAXIS [None]
  - RENAL FAILURE ACUTE [None]
  - THROMBOCYTOPENIA [None]
